FAERS Safety Report 4350631-2 (Version None)
Quarter: 2004Q2

REPORT INFORMATION
  Report Type: 
  Country: None (occurrence: None)
  Receive Date: 20040429
  Receipt Date: 20040429
  Transmission Date: 20050107
  Serious: Yes (Other)
  Sender: FDA-Public Use
  Company Number: None

PATIENT
  Age: 85 Year
  Sex: Male
  Weight: 72.5755 kg

DRUGS (11)
  1. AZITHROMYCIN [Suspect]
     Indication: PNEUMONIA
     Dosage: 500 MG IV DAILY
     Route: 042
     Dates: start: 20040423, end: 20040424
  2. AZITHROMYCIN [Suspect]
     Indication: URINARY TRACT INFECTION
     Dosage: 500 MG IV DAILY
     Route: 042
     Dates: start: 20040423, end: 20040424
  3. PROTONIX [Concomitant]
  4. MULTI-VITAMIN [Concomitant]
  5. NESONEX [Concomitant]
  6. LANAZEPAM [Concomitant]
  7. LOVENOX [Concomitant]
  8. APAP TAB [Concomitant]
  9. ALBUTEROL [Concomitant]
  10. IPRATOPRIN [Concomitant]
  11. AZTREONE [Concomitant]

REACTIONS (1)
  - URTICARIA [None]
